FAERS Safety Report 6555006-3 (Version None)
Quarter: 2010Q1

REPORT INFORMATION
  Report Type: 
  Country: None (occurrence: None)
  Receive Date: 20100126
  Receipt Date: 20100126
  Transmission Date: 20100710
  Serious: Yes (Hospitalization)
  Sender: FDA-Public Use
  Company Number: None

PATIENT
  Sex: Female
  Weight: 74.5 kg

DRUGS (1)
  1. RECLAST [Suspect]
     Dosage: ANNUAL IV
     Route: 042
     Dates: start: 20100105

REACTIONS (4)
  - ASTHENIA [None]
  - LEUKOPENIA [None]
  - MYALGIA [None]
  - PYREXIA [None]
